FAERS Safety Report 8326471-6 (Version None)
Quarter: 2012Q2

REPORT INFORMATION
  Report Type: 
  Country: None (occurrence: None)
  Receive Date: 20120501
  Receipt Date: 20120424
  Transmission Date: 20120825
  Serious: Yes (Other)
  Sender: FDA-Public Use
  Company Number: JP-PFIZER INC-2012090553

PATIENT
  Age: 60 Year
  Sex: Female

DRUGS (3)
  1. LYRICA [Suspect]
     Indication: HERNIA PAIN
     Dosage: 25 MG IN THE MORNING, 75 MG IN THE EVENING
     Route: 048
  2. LOXONIN [Concomitant]
     Indication: PAIN IN EXTREMITY
     Dosage: UNKNOWN DOSE THREE TIME DAILY
     Route: 048
     Dates: start: 20100101
  3. CLEAMINE [Concomitant]
     Indication: HEADACHE
     Dosage: ONE OR TWO TIMES DAILY
     Route: 048

REACTIONS (4)
  - ROAD TRAFFIC ACCIDENT [None]
  - DISTURBANCE IN ATTENTION [None]
  - DIZZINESS [None]
  - SOMNOLENCE [None]
